FAERS Safety Report 9692388 (Version 1)
Quarter: 2013Q4

REPORT INFORMATION
  Report Type: Spontaneous
  Country: US (occurrence: US)
  Receive Date: 20131118
  Receipt Date: 20131118
  Transmission Date: 20140711
  Serious: No
  Sender: FDA-Public Use
  Company Number: US-PFIZER INC-2013326911

PATIENT
  Age: 52 Year
  Sex: Female
  Weight: 94.33 kg

DRUGS (3)
  1. NEURONTIN [Suspect]
     Indication: FIBROMYALGIA
     Dosage: 600 MG, 3X/DAY
     Dates: start: 2011, end: 2012
  2. CYMBALTA [Concomitant]
     Dosage: UNK, 3X/DAY
  3. OXYCODONE [Concomitant]
     Dosage: 20 MG, EVERY 6 HOURS

REACTIONS (1)
  - Drug ineffective [Unknown]
